FAERS Safety Report 23351106 (Version 1)
Quarter: 2023Q4

REPORT INFORMATION
  Report Type: Report from Study
  Country: US (occurrence: US)
  Receive Date: 20231229
  Receipt Date: 20231229
  Transmission Date: 20240110
  Serious: Yes (Other)
  Sender: FDA-Public Use
  Company Number: US-BAYER-2023A183930

PATIENT

DRUGS (2)
  1. ASPIRIN [Suspect]
     Active Substance: ASPIRIN
  2. CLOPIDOGREL [Suspect]
     Active Substance: CLOPIDOGREL BISULFATE

REACTIONS (6)
  - Fall [None]
  - Subdural haematoma [Recovered/Resolved]
  - Headache [Recovered/Resolved]
  - Mental status changes [Recovered/Resolved]
  - Gait disturbance [Recovered/Resolved]
  - Labelled drug-drug interaction issue [None]
